FAERS Safety Report 4423604-9 (Version None)
Quarter: 2004Q3

REPORT INFORMATION
  Report Type: 
  Country: None (occurrence: None)
  Receive Date: 20040714
  Receipt Date: 20031006
  Transmission Date: 20050211
  Serious: Yes (Other)
  Sender: FDA-Public Use
  Company Number: 200318781US

PATIENT
  Age: 43 Year
  Sex: Female

DRUGS (4)
  1. TAXOTERE [Suspect]
     Indication: BREAST CANCER
     Dosage: Q3W
     Dates: start: 20030701
  2. DOXORUBICIN HCL [Concomitant]
  3. STEROIDS [Concomitant]
  4. MANY MEDICATIONS [Concomitant]

REACTIONS (1)
  - FLUID RETENTION [None]
